FAERS Safety Report 19879705 (Version 2)
Quarter: 2024Q3

REPORT INFORMATION
  Report Type: Spontaneous
  Country: JP (occurrence: JP)
  Receive Date: 20210924
  Receipt Date: 20240826
  Transmission Date: 20241016
  Serious: Yes (Hospitalization, Other)
  Sender: PFIZER
  Company Number: JP-ONO-2021JP023019

PATIENT
  Age: 74 Year
  Sex: Male
  Weight: 69 kg

DRUGS (14)
  1. MEKTOVI [Suspect]
     Active Substance: BINIMETINIB
     Indication: Rectal cancer
     Dosage: 45 MG, Q12H
     Route: 048
     Dates: start: 20210727, end: 20210810
  2. BRAFTOVI [Suspect]
     Active Substance: ENCORAFENIB
     Indication: Rectal cancer
     Dosage: 300 MG, EVERYDAY
     Route: 048
     Dates: start: 20210727, end: 20210810
  3. BRAFTOVI [Suspect]
     Active Substance: ENCORAFENIB
     Dosage: UNK
     Route: 048
  4. ERBITUX [Suspect]
     Active Substance: CETUXIMAB
     Indication: Rectal cancer
     Dosage: 430 MG, EVERYDAY
     Route: 041
     Dates: start: 20210727, end: 20210803
  5. ERBITUX [Suspect]
     Active Substance: CETUXIMAB
     Dosage: UNK
     Route: 048
  6. IMIDAPRIL HYDROCHLORIDE [Concomitant]
     Active Substance: IMIDAPRIL HYDROCHLORIDE
     Dosage: 5 MG, EVERYDAY
     Route: 048
     Dates: end: 20210811
  7. TAMSULOSIN HYDROCHLORIDE [Concomitant]
     Active Substance: TAMSULOSIN HYDROCHLORIDE
     Dosage: 0.2 MG, EVERYDAY
     Route: 048
  8. BISOPROLOL FUMARATE [Concomitant]
     Active Substance: BISOPROLOL FUMARATE
     Dosage: 2.5 MG, EVERYDAY
     Route: 048
  9. ALLOPURINOL [Concomitant]
     Active Substance: ALLOPURINOL
     Dosage: 100 MG, Q12H
     Route: 048
     Dates: end: 20210811
  10. BEZAFIBRATE [Concomitant]
     Active Substance: BEZAFIBRATE
     Dosage: 100 MG, EVERYDAY,SLOW RELEASE
     Route: 048
     Dates: end: 20210811
  11. LINAGLIPTIN [Concomitant]
     Active Substance: LINAGLIPTIN
     Dosage: 5 MG, EVERYDAY
     Route: 048
     Dates: start: 20201015
  12. RYZODEG 70/30 [Concomitant]
     Active Substance: INSULIN ASPART\INSULIN DEGLUDEC
     Dosage: 10 IU, EVERYDAY
     Route: 065
     Dates: start: 20210506
  13. NOVORAPID [Concomitant]
     Active Substance: INSULIN ASPART
     Dosage: 10 IU (6 UNITS IN THE AFTERNOON, 4 UNITS IN THE EVENING), EVERYDAY
     Route: 065
     Dates: start: 20210506
  14. HEPARINOID [Concomitant]
     Dosage: SEVERAL TIMES A DAY
     Route: 061

REACTIONS (2)
  - Acute kidney injury [Recovering/Resolving]
  - Diarrhoea [Unknown]

NARRATIVE: CASE EVENT DATE: 20210810
